FAERS Safety Report 17353396 (Version 2)
Quarter: 2020Q1

REPORT INFORMATION
  Report Type: Spontaneous
  Country: US (occurrence: US)
  Receive Date: 20200131
  Receipt Date: 20200203
  Transmission Date: 20200409
  Serious: No
  Sender: FDA-Public Use
  Company Number: US-009507513-2001USA011069

PATIENT
  Age: 20 Year
  Sex: Female
  Weight: 110 kg

DRUGS (9)
  1. NEXPLANON [Suspect]
     Active Substance: ETONOGESTREL
     Dosage: 1 ROD EVERY 3 YEARS
     Route: 059
     Dates: start: 20190109
  2. REMERON [Concomitant]
     Active Substance: MIRTAZAPINE
  3. RISPERIDONE. [Concomitant]
     Active Substance: RISPERIDONE
  4. PROVENTIL [Concomitant]
     Active Substance: ALBUTEROL
  5. IPRATROPIUM BROMIDE. [Concomitant]
     Active Substance: IPRATROPIUM BROMIDE
     Dosage: FORMULATION - INHALATION
  6. FLUTICASONE PROPIONATE. [Concomitant]
     Active Substance: FLUTICASONE PROPIONATE
  7. NEXPLANON [Suspect]
     Active Substance: ETONOGESTREL
     Indication: CONTRACEPTION
     Dosage: 1 ROD EVERY 3 YEARS
     Route: 059
     Dates: start: 20150929, end: 20190109
  8. SINGULAIR [Concomitant]
     Active Substance: MONTELUKAST SODIUM
  9. IBUPROFEN. [Concomitant]
     Active Substance: IBUPROFEN

REACTIONS (3)
  - Complication associated with device [Not Recovered/Not Resolved]
  - Asthma [Not Recovered/Not Resolved]
  - Incorrect product administration duration [Unknown]

NARRATIVE: CASE EVENT DATE: 201901
